FAERS Safety Report 8405388-2 (Version None)
Quarter: 2012Q2

REPORT INFORMATION
  Report Type: 
  Country: None (occurrence: None)
  Receive Date: 20120604
  Receipt Date: 20120523
  Transmission Date: 20120825
  Serious: Yes (Hospitalization)
  Sender: FDA-Public Use
  Company Number: US-BIOGENIDEC-2012BI006485

PATIENT
  Sex: Female

DRUGS (2)
  1. TYSABRI [Suspect]
     Dates: start: 20120401
  2. TYSABRI [Suspect]
     Indication: MULTIPLE SCLEROSIS
     Route: 042
     Dates: start: 20061219, end: 20120214

REACTIONS (7)
  - DEPRESSION [None]
  - UNRESPONSIVE TO STIMULI [None]
  - FALL [None]
  - CEREBRAL ATROPHY [None]
  - CHOLELITHIASIS [None]
  - SUICIDE ATTEMPT [None]
  - AMYLASE INCREASED [None]
